FAERS Safety Report 7074503-8 (Version None)
Quarter: 2010Q4

REPORT INFORMATION
  Report Type: 
  Country: None (occurrence: None)
  Receive Date: 20101029
  Receipt Date: 20101015
  Transmission Date: 20110411
  Serious: Yes (Disabling, Other)
  Sender: FDA-Public Use
  Company Number: NL-AMGEN-NLDSP2010000305

PATIENT

DRUGS (6)
  1. PANITUMUMAB [Suspect]
     Indication: PRODUCT USED FOR UNKNOWN INDICATION
     Dosage: 470 MG, UNK
     Dates: start: 20091125, end: 20100320
  2. ALLOPURINOL [Concomitant]
     Dosage: 300 MG, QD
     Dates: start: 20070101
  3. PANTOZOL                           /01263202/ [Concomitant]
     Dosage: 40 MG, QD
     Dates: start: 20070101
  4. METOPROLOL [Concomitant]
     Dosage: 50 MG, QD
     Dates: start: 20080701
  5. TAMSULOSIN [Concomitant]
     Dosage: 0.4 MG, QD
     Dates: start: 20070101
  6. DIOVAN [Concomitant]
     Dosage: 160 MG, QD
     Dates: start: 20090101, end: 20100614

REACTIONS (4)
  - ATAXIA [None]
  - HYPOMAGNESAEMIA [None]
  - NAIL DISORDER [None]
  - RASH [None]
